FAERS Safety Report 13609597 (Version 3)
Quarter: 2017Q3

REPORT INFORMATION
  Report Type: Spontaneous
  Country: US (occurrence: US)
  Receive Date: 20170602
  Receipt Date: 20170706
  Transmission Date: 20171127
  Serious: No
  Sender: FDA-Public Use
  Company Number: US-BIOGEN-2017BI00409491

PATIENT
  Age: 41 Year
  Sex: Female

DRUGS (2)
  1. TECFIDERA [Suspect]
     Active Substance: DIMETHYL FUMARATE
     Indication: MULTIPLE SCLEROSIS
     Dosage: STARTING DOSE
     Route: 048
     Dates: start: 2014, end: 2014
  2. TECFIDERA [Suspect]
     Active Substance: DIMETHYL FUMARATE
     Dosage: MAINTENANCE DOSE
     Route: 048
     Dates: start: 20140423

REACTIONS (5)
  - Hypersensitivity [Recovered/Resolved]
  - Affect lability [Recovered/Resolved]
  - Balance disorder [Recovered/Resolved]
  - Social avoidant behaviour [Unknown]
  - Mood altered [Recovered/Resolved]

NARRATIVE: CASE EVENT DATE: 201404
